FAERS Safety Report 7736071-4 (Version None)
Quarter: 2011Q3

REPORT INFORMATION
  Report Type: 
  Country: None (occurrence: None)
  Receive Date: 20110902
  Receipt Date: 20110819
  Transmission Date: 20111222
  Serious: Yes (Hospitalization)
  Sender: FDA-Public Use
  Company Number: JP-20110029

PATIENT
  Age: 65 Year
  Sex: Male

DRUGS (1)
  1. (LIPIODOL ULTRA FLUIDE) (ETHIODIZED OIL) [Suspect]
     Indication: PHYSICAL EXAMINATION
     Dosage: 0.3 ML (0.3 ML, 1 IN 1 TOTAL) TRANSDERMAL
     Route: 062

REACTIONS (3)
  - OFF LABEL USE [None]
  - ALVEOLITIS ALLERGIC [None]
  - PNEUMONIA [None]
